FAERS Safety Report 10707316 (Version 1)
Quarter: 2015Q1

REPORT INFORMATION
  Report Type: Spontaneous
  Country: US (occurrence: US)
  Receive Date: 20150113
  Receipt Date: 20150113
  Transmission Date: 20150721
  Serious: Yes (Other)
  Sender: FDA-Public Use
  Company Number: US-SA-2015SA003597

PATIENT
  Age: 54 Year
  Sex: Male

DRUGS (6)
  1. LOPRESSOR [Concomitant]
     Active Substance: METOPROLOL TARTRATE
  2. ZOCOR [Concomitant]
     Active Substance: SIMVASTATIN
  3. ASPIRIN. [Concomitant]
     Active Substance: ASPIRIN
  4. MULTAQ [Suspect]
     Active Substance: DRONEDARONE
     Indication: ATRIAL FIBRILLATION
     Route: 065
     Dates: start: 201412
  5. XARELTO [Concomitant]
     Active Substance: RIVAROXABAN
     Indication: ANTICOAGULANT THERAPY
  6. TRICOR [Concomitant]
     Active Substance: FENOFIBRATE

REACTIONS (1)
  - Cardioversion [Unknown]

NARRATIVE: CASE EVENT DATE: 201412
